FAERS Safety Report 8324130 (Version 5)
Quarter: 2012Q4

REPORT INFORMATION
  Report Type: 
  Country: US (occurrence: US)
  Receive Date: 20120105
  Receipt Date: 20120829
  Transmission Date: 20130627
  Serious: Yes (Hospitalization, Other)
  Sender: FDA-Public Use
  Company Number: US-009507513-1201USA00343

PATIENT

DRUGS (6)
  1. FOSAMAX [Suspect]
     Indication: OSTEOPENIA
     Dosage: 10 mg, qd
     Route: 048
     Dates: start: 20001120
  2. FOSAMAX [Suspect]
     Dosage: 5 mg, qd
     Route: 048
     Dates: start: 2002
  3. FOSAMAX [Suspect]
     Dosage: 35 mg, QW
     Route: 048
     Dates: start: 20021017
  4. FOSAMAX [Suspect]
     Dosage: 70 mg, QW
     Route: 048
     Dates: end: 20100208
  5. FOSAMAX [Suspect]
     Indication: OSTEOPENIA
     Dosage: 70 mg, QW
     Route: 048
     Dates: start: 20080311
  6. VITAMINS [Suspect]
     Dates: start: 1990

REACTIONS (41)
  - Ovarian cancer [Unknown]
  - Osteoarthritis [Unknown]
  - Haemoglobin decreased [Recovered/Resolved]
  - Leukocytosis [Recovered/Resolved]
  - Fall [Unknown]
  - Lumbar spinal stenosis [Unknown]
  - Mobility decreased [Unknown]
  - Intervertebral disc operation [Unknown]
  - Joint arthroplasty [Unknown]
  - Intervertebral disc protrusion [Unknown]
  - Spinal laminectomy [Unknown]
  - Foraminotomy [Unknown]
  - Intraocular lens implant [Unknown]
  - Spondylolisthesis [Unknown]
  - Intervertebral disc protrusion [Unknown]
  - Radiculopathy [Unknown]
  - Spinal fusion surgery [Unknown]
  - Bone graft [Unknown]
  - Confusional state [Unknown]
  - Haemorrhagic anaemia [Unknown]
  - Transfusion [Unknown]
  - Ileus [Unknown]
  - Spinal fusion surgery [Unknown]
  - Open reduction of fracture [Unknown]
  - Femur fracture [Unknown]
  - Intervertebral disc disorder [Unknown]
  - Osteoporosis [Unknown]
  - Hypertension [Unknown]
  - Hypercholesterolaemia [Unknown]
  - Peptic ulcer [Unknown]
  - Chronic obstructive pulmonary disease [Not Recovered/Not Resolved]
  - Bursitis [Unknown]
  - Urinary tract infection [Unknown]
  - Cervical spinal stenosis [Unknown]
  - Glucose tolerance impaired [Unknown]
  - Cataract [Unknown]
  - Supraventricular extrasystoles [Unknown]
  - Electrocardiogram T wave abnormal [Unknown]
  - Catheterisation cardiac [Unknown]
  - Back pain [Not Recovered/Not Resolved]
  - Gastrooesophageal reflux disease [Unknown]
